FAERS Safety Report 8574855-3 (Version None)
Quarter: 2012Q2

REPORT INFORMATION
  Report Type: 
  Country: None (occurrence: None)
  Receive Date: 20120423
  Receipt Date: 20091102
  Transmission Date: 20120825
  Serious: Yes (Other)
  Sender: FDA-Public Use
  Company Number: PHEH2009US15555

PATIENT
  Age: 76 Year
  Sex: Female
  Weight: 79 kg

DRUGS (2)
  1. CYCLOSPORINE [Suspect]
  2. EXJADE [Suspect]
     Dosage: DAILY, ORAL
     Route: 048
     Dates: start: 20090121, end: 20090806

REACTIONS (1)
  - RENAL FAILURE [None]
